FAERS Safety Report 26189329 (Version 1)
Quarter: 2025Q4

REPORT INFORMATION
  Report Type: Spontaneous
  Country: US (occurrence: US)
  Receive Date: 20251223
  Receipt Date: 20251223
  Transmission Date: 20260118
  Serious: No
  Sender: AUROBINDO
  Company Number: US-AUROBINDO-AUR-APL-2025-051229

PATIENT
  Age: 66 Year
  Weight: 85.261 kg

DRUGS (7)
  1. LENALIDOMIDE [Suspect]
     Active Substance: LENALIDOMIDE
     Indication: Plasma cell myeloma
     Dosage: 15 MILLIGRAM (DAILY 1-28)
     Route: 061
  2. AMLODIPINE BESYLATE [Concomitant]
     Active Substance: AMLODIPINE BESYLATE
     Indication: Product used for unknown indication
     Route: 065
  3. CetirizineHcl Oraltablet10 mg [Concomitant]
     Indication: Product used for unknown indication
     Route: 065
  4. Dorzolamide HCL 2% Solution [Concomitant]
     Indication: Product used for unknown indication
     Dosage: UNK
     Route: 065
  5. Gabapentin 100 mg caos [Concomitant]
     Indication: Product used for unknown indication
     Route: 065
  6. Klor-Con M20 20 MEQ TBCR [Concomitant]
     Indication: Product used for unknown indication
     Route: 065
  7. LATANOPROST [Concomitant]
     Active Substance: LATANOPROST
     Indication: Product used for unknown indication
     Route: 065

REACTIONS (2)
  - Diarrhoea [Unknown]
  - Abdominal pain upper [Unknown]
